FAERS Safety Report 7591505-3 (Version None)
Quarter: 2011Q2

REPORT INFORMATION
  Report Type: 
  Country: None (occurrence: None)
  Receive Date: 20110627
  Receipt Date: 20110617
  Transmission Date: 20111010
  Serious: Yes (Death)
  Sender: FDA-Public Use
  Company Number: 2011-1192

PATIENT
  Age: 62 Year
  Sex: Male

DRUGS (4)
  1. FLOMAX [Concomitant]
  2. SOMATULINE 90 MG (LANREOTIDE AUTOGEL) (LANREOTIDE (LANREOTIDE ACETATE) [Suspect]
     Indication: NEUROENDOCRINE TUMOUR
     Dosage: 90 MG (90 MG, 1 IN 4 WK), SUBCUTANEOUS
     Route: 058
     Dates: start: 20101103
  3. SYNTHROID [Concomitant]
  4. DILAUDID [Concomitant]

REACTIONS (3)
  - NEUROENDOCRINE TUMOUR [None]
  - NEOPLASM PROGRESSION [None]
  - METASTASIS [None]
